FAERS Safety Report 8887638 (Version 1)
Quarter: 2012Q4

REPORT INFORMATION
  Report Type: 
  Country: CA (occurrence: CA)
  Receive Date: 20121106
  Receipt Date: 20121106
  Transmission Date: 20130627
  Serious: Yes (Other)
  Sender: FDA-Public Use
  Company Number: CA-JNJFOC-20121100522

PATIENT
  Sex: Male

DRUGS (1)
  1. BENYLIN DM [Suspect]
     Indication: MALAISE
     Route: 048

REACTIONS (2)
  - Loss of consciousness [Unknown]
  - Wrong drug administered [Unknown]
